FAERS Safety Report 4519577-0 (Version None)
Quarter: 2004Q4

REPORT INFORMATION
  Report Type: 
  Country: None (occurrence: None)
  Receive Date: 20041206
  Receipt Date: 20041122
  Transmission Date: 20050328
  Serious: Yes (Hospitalization, Disabling)
  Sender: FDA-Public Use
  Company Number: DE-MERCK-0411DEU00471

PATIENT
  Age: 46 Year
  Sex: Female

DRUGS (3)
  1. VIOXX [Suspect]
     Indication: PAIN
     Route: 048
     Dates: start: 20040331, end: 20040404
  2. VIOXX [Suspect]
     Route: 048
     Dates: start: 20040405, end: 20040501
  3. VIOXX [Suspect]
     Route: 048
     Dates: start: 19990101, end: 20040330

REACTIONS (9)
  - CEREBROVASCULAR ACCIDENT [None]
  - EMBOLISM [None]
  - HELICOBACTER GASTRITIS [None]
  - IMPLANT SITE INFECTION [None]
  - OSTEOARTHRITIS [None]
  - POSTOPERATIVE INFECTION [None]
  - STAPHYLOCOCCAL INFECTION [None]
  - URINARY TRACT INFECTION [None]
  - VERTEBRAL ARTERY OCCLUSION [None]
